FAERS Safety Report 13743095 (Version 3)
Quarter: 2017Q3

REPORT INFORMATION
  Report Type: Report from Study
  Country: CA (occurrence: CA)
  Receive Date: 20170711
  Receipt Date: 20170720
  Transmission Date: 20171127
  Serious: Yes (Hospitalization)
  Sender: FDA-Public Use
  Company Number: CA-JNJFOC-20170703434

PATIENT
  Age: 20 Year
  Sex: Female
  Weight: 55 kg

DRUGS (1)
  1. REMICADE [Suspect]
     Active Substance: INFLIXIMAB
     Indication: CROHN^S DISEASE
     Route: 042
     Dates: start: 20161130, end: 20170705

REACTIONS (6)
  - Drug specific antibody present [Unknown]
  - Intestinal resection [Unknown]
  - Pleural effusion [Unknown]
  - Drug ineffective [Unknown]
  - Suture related complication [Unknown]
  - Abscess [Unknown]

NARRATIVE: CASE EVENT DATE: 2017
